FAERS Safety Report 22145380 (Version 1)
Quarter: 2023Q1

REPORT INFORMATION
  Report Type: Report from Study
  Country: GB (occurrence: GB)
  Receive Date: 20230328
  Receipt Date: 20230328
  Transmission Date: 20230418
  Serious: Yes (Hospitalization, Other)
  Sender: FDA-Public Use
  Company Number: GB-ROCHE-3006806

PATIENT
  Age: 76 Year
  Sex: Male
  Weight: 63.65 kg

DRUGS (22)
  1. CARBOPLATIN [Suspect]
     Active Substance: CARBOPLATIN
     Indication: Small cell lung cancer extensive stage
     Dosage: UNIT DOSE : 400 MG
     Route: 065
     Dates: start: 20211029
  2. ETOPOSIDE [Suspect]
     Active Substance: ETOPOSIDE
     Indication: Small cell lung cancer extensive stage
     Dosage: UNIT DOSE : 164 MG
     Route: 042
     Dates: start: 20211029
  3. ATEZOLIZUMAB [Suspect]
     Active Substance: ATEZOLIZUMAB
     Indication: Small cell lung cancer extensive stage
     Dosage: UNIT DOSE : 1200 MG, FREQUENCY: 1 EVERY 4 WEEKS, ON 08/AUG/2022, RECEIVED MOST RECENT DOSE 1680 MG O
     Route: 041
     Dates: start: 20211029
  4. ETOPOSIDE [Suspect]
     Active Substance: ETOPOSIDE
     Indication: Product used for unknown indication
     Dosage: UNIT DOSE : 350 MG
     Route: 048
     Dates: start: 20211118
  5. AMLODIPINE [Concomitant]
     Active Substance: AMLODIPINE BESYLATE
     Indication: Product used for unknown indication
     Dosage: FREQUENCY: ONCE DAILY
     Route: 065
     Dates: start: 20211003
  6. ATORVASTATIN [Concomitant]
     Active Substance: ATORVASTATIN
     Indication: Product used for unknown indication
     Dosage: FREQUENCY: ONCE DAILY
     Route: 065
     Dates: start: 20211003
  7. CHLORPHENIRAMINE MALEATE [Concomitant]
     Active Substance: CHLORPHENIRAMINE MALEATE
     Indication: Product used for unknown indication
     Dosage: THERAPY DURATION : 1 DAYS
     Route: 065
     Dates: start: 20211117, end: 20211117
  8. CHLORPHENIRAMINE MALEATE [Concomitant]
     Active Substance: CHLORPHENIRAMINE MALEATE
     Dosage: THERAPY DURATION : 1 DAYS
     Route: 065
     Dates: start: 20211229, end: 20211229
  9. CHLORPHENIRAMINE MALEATE [Concomitant]
     Active Substance: CHLORPHENIRAMINE MALEATE
     Dosage: THERAPY DURATION : 1 DAYS
     Route: 065
     Dates: start: 20211208, end: 20211208
  10. DEXAMETHASONE [Concomitant]
     Active Substance: DEXAMETHASONE
     Indication: Product used for unknown indication
     Dosage: THERAPY DURATION : 1 DAYS
     Route: 065
     Dates: start: 20211117, end: 20211117
  11. DEXAMETHASONE [Concomitant]
     Active Substance: DEXAMETHASONE
     Dosage: THERAPY DURATION : 1 DAYS, UNIT DOSE : 20 MG
     Route: 065
     Dates: start: 20211208, end: 20211208
  12. DEXAMETHASONE [Concomitant]
     Active Substance: DEXAMETHASONE
     Dosage: THERAPY DURATION : 1 DAYS
     Route: 065
     Dates: start: 20211229, end: 20211229
  13. FAMOTIDINE [Concomitant]
     Active Substance: FAMOTIDINE
     Indication: Product used for unknown indication
     Dosage: THERAPY DURATION : 1 DAYS
     Route: 065
     Dates: start: 20211117, end: 20211117
  14. FAMOTIDINE [Concomitant]
     Active Substance: FAMOTIDINE
     Dosage: THERAPY DURATION : 1 DAYS
     Route: 065
     Dates: start: 20211208, end: 20211208
  15. FAMOTIDINE [Concomitant]
     Active Substance: FAMOTIDINE
     Dosage: THERAPY DURATION : 1 DAYS, UNIT DOSE : 40 MG
     Route: 065
     Dates: start: 20211229, end: 20211229
  16. FILGRASTIM [Concomitant]
     Active Substance: FILGRASTIM
     Indication: Product used for unknown indication
     Dosage: THERAPY DURATION : 5  DAYS
     Route: 065
     Dates: start: 20220102, end: 20220106
  17. FILGRASTIM [Concomitant]
     Active Substance: FILGRASTIM
     Dosage: THERAPY DURATION : 5  DAYS
     Route: 065
     Dates: start: 20211212, end: 20211216
  18. FILGRASTIM [Concomitant]
     Active Substance: FILGRASTIM
     Dosage: THERAPY DURATION : 5  DAYS
     Route: 065
     Dates: start: 20211121, end: 20211125
  19. GRANISETRON [Concomitant]
     Active Substance: GRANISETRON
     Indication: Product used for unknown indication
     Dosage: THERAPY DURATION : 1 DAYS
     Route: 065
     Dates: start: 20211117, end: 20211117
  20. GRANISETRON [Concomitant]
     Active Substance: GRANISETRON
     Dosage: THERAPY DURATION : 1 DAYS, UNIT DOSE : 3 MG
     Route: 065
     Dates: start: 20211229, end: 20211229
  21. GRANISETRON [Concomitant]
     Active Substance: GRANISETRON
     Dosage: THERAPY DURATION : 1 DAYS
     Route: 065
     Dates: start: 20211208, end: 20211208
  22. ATEZOLIZUMAB [Concomitant]
     Active Substance: ATEZOLIZUMAB
     Indication: Product used for unknown indication
     Dosage: UNIT DOSE : 1200 MG
     Route: 065
     Dates: start: 20211029

REACTIONS (19)
  - Thrombocytopenia [Recovered/Resolved]
  - Pneumonia [Recovered/Resolved]
  - Lethargy [Recovered/Resolved]
  - Epistaxis [Recovered/Resolved]
  - Alopecia [Recovered/Resolved]
  - Alanine aminotransferase increased [Recovered/Resolved]
  - Dyspnoea [Recovered/Resolved]
  - Rash pustular [Recovered/Resolved]
  - Fatigue [Recovered/Resolved]
  - Myalgia [Recovered/Resolved]
  - Nausea [Recovered/Resolved]
  - Vomiting [Recovered/Resolved]
  - Diarrhoea [Recovered/Resolved]
  - Anaemia [Recovered/Resolved]
  - Platelet count decreased [Recovered/Resolved]
  - Cough [Recovered/Resolved]
  - Platelet count decreased [Recovered/Resolved]
  - Alanine aminotransferase increased [Recovered/Resolved]
  - Atrial flutter [Not Recovered/Not Resolved]

NARRATIVE: CASE EVENT DATE: 20211206
